FAERS Safety Report 12672311 (Version 2)
Quarter: 2016Q4

REPORT INFORMATION
  Report Type: Spontaneous
  Country: US (occurrence: US)
  Receive Date: 20160822
  Receipt Date: 20161116
  Transmission Date: 20170207
  Serious: No
  Sender: FDA-Public Use
  Company Number: US-JNJFOC-20160812121

PATIENT
  Sex: Female
  Weight: 65.32 kg

DRUGS (2)
  1. WOMENS ROGAINE UNSCENTED [Suspect]
     Active Substance: MINOXIDIL
     Indication: SKIN TEST
     Dosage: SMALL AMOUNT, ONCE DAILY FOR 3 DAYS
     Route: 061
  2. WOMENS ROGAINE UNSCENTED [Suspect]
     Active Substance: MINOXIDIL
     Route: 061

REACTIONS (4)
  - Off label use [Recovering/Resolving]
  - Drug administered at inappropriate site [Recovering/Resolving]
  - Rash [Recovering/Resolving]
  - Product use issue [Recovering/Resolving]
